FAERS Safety Report 21178780 (Version 1)
Quarter: 2022Q3

REPORT INFORMATION
  Report Type: Spontaneous
  Country: US (occurrence: None)
  Receive Date: 20220804
  Receipt Date: 20220804
  Transmission Date: 20221027
  Serious: Yes (Life-Threatening, Hospitalization)
  Sender: FDA-Public Use
  Company Number: None

PATIENT
  Age: 62 Year
  Sex: Female

DRUGS (19)
  1. OTEZLA [Suspect]
     Active Substance: APREMILAST
     Indication: Psoriasis
     Route: 048
     Dates: start: 20220101, end: 20220624
  2. ANORO ELLIPTA [Concomitant]
     Active Substance: UMECLIDINIUM BROMIDE\VILANTEROL TRIFENATATE
  3. CALCIUM ACETATE [Concomitant]
     Active Substance: CALCIUM ACETATE
  4. CINACALCET [Concomitant]
     Active Substance: CINACALCET
  5. DICLOFENAC [Concomitant]
     Active Substance: DICLOFENAC
  6. FUROSEMIDE [Concomitant]
     Active Substance: FUROSEMIDE
  7. LIDOCAINE PATCH [Concomitant]
     Active Substance: LIDOCAINE
  8. PREDNISONE [Concomitant]
  9. TRAMADOL [Concomitant]
     Active Substance: TRAMADOL
  10. TRIAMCINOLONE [Concomitant]
     Active Substance: TRIAMCINOLONE
  11. TRAMCINOLONE OINTMENT [Concomitant]
  12. VENTOLIN HFA [Concomitant]
     Active Substance: ALBUTEROL SULFATE
  13. SULFAMETHOXAZOLE\TRIMETHOPRIM [Concomitant]
     Active Substance: SULFAMETHOXAZOLE\TRIMETHOPRIM
  14. IMIPRAMINE [Concomitant]
     Active Substance: IMIPRAMINE
  15. SALICYLIC AC [Concomitant]
  16. DOVONEX [Concomitant]
     Active Substance: CALCIPOTRIENE
  17. CLOBETASOL PRO CREAM [Concomitant]
  18. FENOFIBRATE [Concomitant]
     Active Substance: FENOFIBRATE
  19. SIMVASTATIN [Concomitant]
     Active Substance: SIMVASTATIN

REACTIONS (1)
  - Sepsis [None]

NARRATIVE: CASE EVENT DATE: 20220720
